FAERS Safety Report 6745931-2 (Version None)
Quarter: 2010Q2

REPORT INFORMATION
  Report Type: 
  Country: None (occurrence: None)
  Receive Date: 20100528
  Receipt Date: 20100514
  Transmission Date: 20101027
  Serious: Yes (Hospitalization, Other)
  Sender: FDA-Public Use
  Company Number: US-ELI_LILLY_AND_COMPANY-US201002000468

PATIENT
  Sex: Female

DRUGS (10)
  1. FORTEO [Suspect]
     Indication: OSTEOPOROSIS
     Dosage: 20 UG, EACH MORNING
     Route: 065
     Dates: start: 20090404, end: 20100121
  2. FORTEO [Suspect]
     Dosage: 20 UG, DAILY (1/D)
     Route: 065
     Dates: start: 20100124
  3. FORTEO [Suspect]
     Dosage: 20 UG, DAILY (1/D)
  4. VITAMIN TAB [Concomitant]
     Dosage: UNK, UNKNOWN
     Route: 065
  5. BYSTOLIC [Concomitant]
     Dosage: 20 MG, DAILY (1/D)
  6. LISINOPRIL [Concomitant]
     Dosage: 40 MG, 2/D
  7. AMLODIPINE [Concomitant]
     Dosage: 2.5 MG, DAILY (1/D)
  8. CALCIUM W/VITAMIN D NOS [Concomitant]
  9. ASPIRIN [Concomitant]
     Dosage: 81 MG, UNK
  10. VITAMIN D [Concomitant]

REACTIONS (5)
  - CONCUSSION [None]
  - FACIAL BONES FRACTURE [None]
  - FALL [None]
  - RASH [None]
  - RASH MACULAR [None]
